FAERS Safety Report 10041633 (Version 2)
Quarter: 2014Q2

REPORT INFORMATION
  Report Type: Spontaneous
  Country: IT (occurrence: None)
  Receive Date: 20140325
  Receipt Date: 20140514
  Transmission Date: 20141212
  Serious: Yes (Hospitalization)
  Sender: FDA-Public Use
  Company Number: IT-20140034

PATIENT
  Age: 65 Year
  Sex: Female

DRUGS (1)
  1. GADOTERIC ACID [Suspect]
     Indication: NUCLEAR MAGNETIC RESONANCE IMAGING
     Dosage: 18 ML (18 ML, 1 IN 1 D) ?(NOT OTHERWISE SPECIFIED)
     Route: 042
     Dates: start: 20140303, end: 20140303

REACTIONS (2)
  - Laryngeal oedema [None]
  - Rash [None]
